FAERS Safety Report 7377382-4 (Version None)
Quarter: 2011Q1

REPORT INFORMATION
  Report Type: 
  Country: None (occurrence: None)
  Receive Date: 20110328
  Receipt Date: 20110322
  Transmission Date: 20110831
  Serious: Yes (Other)
  Sender: FDA-Public Use
  Company Number: US-PFIZER INC-2011063654

PATIENT
  Sex: Female
  Weight: 63.4 kg

DRUGS (2)
  1. PREMPRO [Suspect]
     Indication: OSTEOPOROSIS PROPHYLAXIS
  2. PREMPRO [Suspect]
     Indication: MENOPAUSAL SYMPTOMS
     Dosage: UNK
     Dates: start: 19991001

REACTIONS (4)
  - BREAST PAIN [None]
  - RASH [None]
  - DERMATITIS CONTACT [None]
  - HYPERTENSION [None]
